FAERS Safety Report 7751988-2 (Version None)
Quarter: 2011Q3

REPORT INFORMATION
  Report Type: 
  Country: None (occurrence: None)
  Receive Date: 20110913
  Receipt Date: 20110830
  Transmission Date: 20111222
  Serious: Yes (Disabling)
  Sender: FDA-Public Use
  Company Number: AUR-APL-2011-04852

PATIENT
  Age: 82 Year
  Sex: Female
  Weight: 61.7 kg

DRUGS (17)
  1. LISINOPRIL [Concomitant]
  2. LANSOPRAZOLE [Concomitant]
  3. ACETAMINOPHEN [Concomitant]
  4. ALENDRONATE SODIUM [Suspect]
     Indication: PRODUCT USED FOR UNKNOWN INDICATION
  5. LETROZOLE [Concomitant]
  6. AMLODIPINE [Concomitant]
  7. ARICEPT [Suspect]
     Indication: PRODUCT USED FOR UNKNOWN INDICATION
     Dosage: 10 MG (10 MG,1 IN 1 D),ORAL
     Route: 048
     Dates: start: 20060101
  8. DOMPERIDONE (DOMPERIDONE) [Concomitant]
  9. ATENOLOL [Concomitant]
  10. TOLBUTAMIDE [Concomitant]
  11. CITALOPRAM HYDROBROMIDE [Concomitant]
  12. SENNA (SENNA ALEXANDRINA) [Concomitant]
  13. FUROSEMIDE [Concomitant]
  14. ASPIRIN [Concomitant]
  15. SIMVASTATIN [Concomitant]
  16. ZOPICLONE (ZOPICLONE) [Concomitant]
  17. METFORMIN HCL [Concomitant]

REACTIONS (3)
  - VOMITING [None]
  - NAUSEA [None]
  - WEIGHT DECREASED [None]
